FAERS Safety Report 4942026-5 (Version None)
Quarter: 2006Q1

REPORT INFORMATION
  Report Type: 
  Country: None (occurrence: None)
  Receive Date: 20060313
  Receipt Date: 20050607
  Transmission Date: 20060701
  Serious: Yes (Hospitalization, Other)
  Sender: FDA-Public Use
  Company Number: US-MERCK-0506USA01067

PATIENT
  Age: 58 Year
  Sex: Female
  Weight: 64 kg

DRUGS (7)
  1. VIOXX [Suspect]
     Indication: PAIN
     Route: 048
     Dates: start: 19990501, end: 20040901
  2. TYLENOL (CAPLET) [Concomitant]
     Route: 065
  3. EFFEXOR [Concomitant]
     Route: 065
  4. SYNTHROID [Concomitant]
     Route: 065
  5. ZOCOR [Concomitant]
     Route: 065
  6. RESTORIL [Concomitant]
     Route: 065
  7. MONOPRIL [Concomitant]
     Route: 065

REACTIONS (32)
  - ACCELERATED HYPERTENSION [None]
  - ACUTE PRERENAL FAILURE [None]
  - AORTIC ARTERIOSCLEROSIS [None]
  - ARTHRITIS [None]
  - CARPAL TUNNEL SYNDROME [None]
  - CEREBRAL INFARCTION [None]
  - CEREBROVASCULAR ACCIDENT [None]
  - CONVULSION [None]
  - DEAFNESS NEUROSENSORY [None]
  - DEMYELINATION [None]
  - DEPRESSION [None]
  - DRUG HYPERSENSITIVITY [None]
  - EMOTIONAL DISTRESS [None]
  - ENDOMETRITIS [None]
  - FATIGUE [None]
  - FIBROMYALGIA [None]
  - HEPATIC MASS [None]
  - HYPERCHOLESTEROLAEMIA [None]
  - HYPERLIPIDAEMIA [None]
  - HYPERTENSIVE ENCEPHALOPATHY [None]
  - HYPOTHYROIDISM [None]
  - INJURY [None]
  - MEMORY IMPAIRMENT [None]
  - MITRAL VALVE INCOMPETENCE [None]
  - ORTHOSTATIC HYPOTENSION [None]
  - PAIN [None]
  - POST-TRAUMATIC STRESS DISORDER [None]
  - RENAL CYST [None]
  - RESTLESS LEGS SYNDROME [None]
  - STRESS [None]
  - TENDONITIS [None]
  - TRANSIENT ISCHAEMIC ATTACK [None]
